FAERS Safety Report 9197497 (Version 1)
Quarter: 2013Q1

REPORT INFORMATION
  Report Type: Report from Study
  Country: JP (occurrence: JP)
  Receive Date: 20130328
  Receipt Date: 20130328
  Transmission Date: 20140127
  Serious: Yes (Other)
  Sender: FDA-Public Use
  Company Number: JP-GLAXOSMITHKLINE-B0860817A

PATIENT
  Age: 45 Year
  Sex: Female
  Weight: 60 kg

DRUGS (15)
  1. TYKERB [Suspect]
     Indication: BREAST CANCER
     Route: 048
     Dates: start: 20120113, end: 20120426
  2. TYKERB [Suspect]
     Indication: BREAST CANCER
     Route: 048
     Dates: start: 20120511, end: 20120531
  3. TYKERB [Suspect]
     Indication: BREAST CANCER
     Route: 048
     Dates: start: 20120615, end: 20120725
  4. TYKERB [Suspect]
     Indication: BREAST CANCER
     Route: 048
     Dates: start: 20120803
  5. XELODA [Suspect]
     Route: 048
     Dates: start: 20120113, end: 20120426
  6. XELODA [Suspect]
     Route: 048
     Dates: start: 20120511, end: 20120531
  7. XELODA [Suspect]
     Route: 048
     Dates: start: 20120615, end: 20120725
  8. XELODA [Suspect]
     Route: 048
     Dates: start: 20120803, end: 20120816
  9. XELODA [Suspect]
     Route: 048
     Dates: start: 20120914, end: 20121129
  10. XELODA [Suspect]
     Route: 048
     Dates: start: 20121206
  11. PARIET [Concomitant]
     Indication: GASTROOESOPHAGEAL REFLUX DISEASE
     Route: 048
     Dates: end: 20120510
  12. ZOMETA [Concomitant]
     Indication: METASTASES TO BONE
     Route: 042
     Dates: start: 20120105, end: 20120823
  13. RANMARK [Concomitant]
     Indication: METASTASES TO BONE
     Route: 058
     Dates: start: 20121004
  14. EDIROL [Concomitant]
     Indication: METASTASES TO BONE
     Route: 048
     Dates: start: 20121004
  15. ASPARA-CA [Concomitant]
     Indication: METASTASES TO BONE
     Route: 048
     Dates: start: 20121004

REACTIONS (7)
  - Hyperbilirubinaemia [Recovered/Resolved]
  - Hyperbilirubinaemia [Recovered/Resolved]
  - Hyperbilirubinaemia [Recovered/Resolved]
  - Hyperbilirubinaemia [Not Recovered/Not Resolved]
  - Palmar-plantar erythrodysaesthesia syndrome [Recovering/Resolving]
  - Stomatitis [Recovered/Resolved]
  - Diarrhoea [Recovered/Resolved]
